FAERS Safety Report 20997934 (Version 1)
Quarter: 2022Q2

REPORT INFORMATION
  Report Type: Spontaneous
  Country: FR (occurrence: FR)
  Receive Date: 20220623
  Receipt Date: 20220623
  Transmission Date: 20220720
  Serious: Yes (Hospitalization)
  Sender: FDA-Public Use
  Company Number: None

PATIENT
  Age: 56 Year
  Sex: Female
  Weight: 59 kg

DRUGS (3)
  1. CISPLATIN [Suspect]
     Active Substance: CISPLATIN
     Indication: Lung neoplasm malignant
     Dates: start: 20211216
  2. VINORELBINE [Suspect]
     Active Substance: VINORELBINE TARTRATE
     Indication: Lung neoplasm malignant
     Dates: start: 20211216
  3. TOZINAMERAN [Suspect]
     Active Substance: TOZINAMERAN
     Indication: COVID-19 immunisation
     Dosage: CONCENTRATE FOR DISPERSION FOR INJECTION, R1
     Route: 030
     Dates: start: 20211202, end: 20211202

REACTIONS (1)
  - Myopericarditis [Recovering/Resolving]

NARRATIVE: CASE EVENT DATE: 20220101
